FAERS Safety Report 16748191 (Version 6)
Quarter: 2020Q1

REPORT INFORMATION
  Report Type: Report from Study
  Country: JP (occurrence: JP)
  Receive Date: 20190827
  Receipt Date: 20200226
  Transmission Date: 20200409
  Serious: Yes (Life-Threatening, Hospitalization, Other)
  Sender: FDA-Public Use
  Company Number: PHJP2019JP002285

PATIENT
  Sex: Female

DRUGS (50)
  1. SIGNIFOR LAR [Suspect]
     Active Substance: PASIREOTIDE PAMOATE
     Dosage: 60 MG, UNK
     Route: 030
     Dates: start: 20170412
  2. SIGNIFOR LAR [Suspect]
     Active Substance: PASIREOTIDE PAMOATE
     Dosage: 60 MG, UNK
     Route: 030
     Dates: start: 20180613
  3. SIGNIFOR LAR [Suspect]
     Active Substance: PASIREOTIDE PAMOATE
     Dosage: 60 MG, UNK
     Route: 030
     Dates: start: 20190417
  4. SIGNIFOR LAR [Suspect]
     Active Substance: PASIREOTIDE PAMOATE
     Dosage: 60 MG, UNK
     Route: 030
     Dates: start: 20170913
  5. SIGNIFOR LAR [Suspect]
     Active Substance: PASIREOTIDE PAMOATE
     Dosage: 60 MG, UNK
     Route: 030
     Dates: start: 20171115
  6. SIGNIFOR LAR [Suspect]
     Active Substance: PASIREOTIDE PAMOATE
     Dosage: 60 MG, UNK
     Route: 030
     Dates: start: 20180110
  7. SIGNIFOR LAR [Suspect]
     Active Substance: PASIREOTIDE PAMOATE
     Dosage: 60 MG, UNK
     Route: 030
     Dates: start: 20181017
  8. SIGNIFOR LAR [Suspect]
     Active Substance: PASIREOTIDE PAMOATE
     Dosage: 60 MG, UNK
     Route: 030
     Dates: start: 20190116
  9. SIGNIFOR LAR [Suspect]
     Active Substance: PASIREOTIDE PAMOATE
     Dosage: 60 MG, UNK
     Route: 030
     Dates: start: 20190515
  10. SIGNIFOR LAR [Suspect]
     Active Substance: PASIREOTIDE PAMOATE
     Dosage: 60 MG, UNK
     Route: 030
     Dates: start: 20190911
  11. SIGNIFOR LAR [Suspect]
     Active Substance: PASIREOTIDE PAMOATE
     Indication: ACROMEGALY
     Dosage: 40 MG, UNK
     Route: 030
     Dates: start: 20161214
  12. SIGNIFOR LAR [Suspect]
     Active Substance: PASIREOTIDE PAMOATE
     Dosage: 60 MG, UNK
     Route: 030
     Dates: start: 20170517
  13. SIGNIFOR LAR [Suspect]
     Active Substance: PASIREOTIDE PAMOATE
     Dosage: 60 MG, UNK
     Route: 030
     Dates: start: 20180214
  14. SIGNIFOR LAR [Suspect]
     Active Substance: PASIREOTIDE PAMOATE
     Dosage: 60 MG, UNK
     Route: 065
     Dates: start: 20200108
  15. URSODEOXYCHOLIC ACID [Concomitant]
     Active Substance: URSODIOL
     Indication: HEPATIC FUNCTION ABNORMAL
     Dosage: 300 MG, UNK
     Route: 048
  16. SIGNIFOR LAR [Suspect]
     Active Substance: PASIREOTIDE PAMOATE
     Dosage: 60 MG, UNK
     Route: 030
     Dates: start: 20180516
  17. SIGNIFOR LAR [Suspect]
     Active Substance: PASIREOTIDE PAMOATE
     Dosage: 60 MG, UNK
     Route: 030
     Dates: start: 20180711
  18. SIGNIFOR LAR [Suspect]
     Active Substance: PASIREOTIDE PAMOATE
     Dosage: 60 MG, UNK
     Route: 030
     Dates: start: 20180808
  19. SIGNIFOR LAR [Suspect]
     Active Substance: PASIREOTIDE PAMOATE
     Dosage: 60 MG, UNK
     Route: 030
     Dates: start: 20181114
  20. SIGNIFOR LAR [Suspect]
     Active Substance: PASIREOTIDE PAMOATE
     Dosage: 60 MG, UNK
     Route: 030
     Dates: start: 20191009
  21. TENELIA [Concomitant]
     Active Substance: TENELIGLIPTIN
     Indication: PROPHYLAXIS
  22. SIGNIFOR LAR [Suspect]
     Active Substance: PASIREOTIDE PAMOATE
     Dosage: 60 MG, UNK
     Route: 030
     Dates: start: 20170315
  23. SIGNIFOR LAR [Suspect]
     Active Substance: PASIREOTIDE PAMOATE
     Dosage: 60 MG, UNK
     Route: 030
     Dates: start: 20181212
  24. SIGNIFOR LAR [Suspect]
     Active Substance: PASIREOTIDE PAMOATE
     Dosage: 60 MG, UNK
     Route: 030
     Dates: start: 20191204
  25. JUVELA N [Concomitant]
     Active Substance: TOCOPHERYL NICOTINATE, D-.ALPHA.
     Indication: ACROMEGALY
     Dosage: 400 MG, UNK
     Route: 048
  26. LIPITOR [Concomitant]
     Active Substance: ATORVASTATIN CALCIUM
     Indication: ACROMEGALY
     Dosage: 10 MG, UNK
     Route: 048
  27. AMARYL [Concomitant]
     Active Substance: GLIMEPIRIDE
     Indication: PROPHYLAXIS
     Dosage: 2 MG, UNK
     Route: 048
     Dates: start: 20170517
  28. TENELIA [Concomitant]
     Active Substance: TENELIGLIPTIN
     Indication: HYPERGLYCAEMIA
     Dosage: 20 MG, UNK
     Route: 048
     Dates: start: 20170412
  29. SIGNIFOR LAR [Suspect]
     Active Substance: PASIREOTIDE PAMOATE
     Dosage: 40 MG, UNK
     Route: 030
     Dates: start: 20170118
  30. SIGNIFOR LAR [Suspect]
     Active Substance: PASIREOTIDE PAMOATE
     Dosage: 40 MG, UNK
     Route: 030
     Dates: start: 20170215
  31. SIGNIFOR LAR [Suspect]
     Active Substance: PASIREOTIDE PAMOATE
     Dosage: 60 MG, UNK
     Route: 030
     Dates: start: 20170614
  32. SIGNIFOR LAR [Suspect]
     Active Substance: PASIREOTIDE PAMOATE
     Dosage: 60 MG, UNK
     Route: 030
     Dates: start: 20170816
  33. SIGNIFOR LAR [Suspect]
     Active Substance: PASIREOTIDE PAMOATE
     Dosage: 60 MG, UNK
     Route: 030
     Dates: start: 20171018
  34. SIGNIFOR LAR [Suspect]
     Active Substance: PASIREOTIDE PAMOATE
     Dosage: 60 MG, UNK
     Route: 030
     Dates: start: 20180314
  35. SIGNIFOR LAR [Suspect]
     Active Substance: PASIREOTIDE PAMOATE
     Dosage: 60 MG, UNK
     Route: 030
     Dates: start: 20190213
  36. SIGNIFOR LAR [Suspect]
     Active Substance: PASIREOTIDE PAMOATE
     Dosage: 60 MG, UNK
     Route: 030
     Dates: start: 20190313
  37. SIGNIFOR LAR [Suspect]
     Active Substance: PASIREOTIDE PAMOATE
     Dosage: 60 MG, UNK
     Route: 030
     Dates: start: 20190814
  38. METHYCOBAL [Concomitant]
     Active Substance: METHYLCOBALAMIN
     Indication: NEUROPATHY PERIPHERAL
     Dosage: 1500 UG, UNK
     Route: 048
  39. SIGNIFOR LAR [Suspect]
     Active Substance: PASIREOTIDE PAMOATE
     Dosage: 60 MG, UNK
     Route: 030
     Dates: start: 20180418
  40. SIGNIFOR LAR [Suspect]
     Active Substance: PASIREOTIDE PAMOATE
     Dosage: 60 MG, UNK
     Route: 030
     Dates: start: 20180912
  41. SIGNIFOR LAR [Suspect]
     Active Substance: PASIREOTIDE PAMOATE
     Dosage: 60 MG, UNK
     Route: 030
     Dates: start: 20190612
  42. SIGNIFOR LAR [Suspect]
     Active Substance: PASIREOTIDE PAMOATE
     Dosage: 60 MG, UNK
     Route: 030
     Dates: start: 20190717
  43. SOMAVERT [Concomitant]
     Active Substance: PEGVISOMANT
     Indication: ACROMEGALY
     Dosage: 60 MG, UNK
     Route: 058
  44. CARNACULIN [Concomitant]
     Active Substance: KALLIDINOGENASE
     Indication: ACROMEGALY
     Dosage: 150 IU, UNK
     Route: 048
  45. THYRADIN S [Concomitant]
     Active Substance: LEVOTHYROXINE SODIUM
     Indication: ACROMEGALY
     Dosage: 100 UG, UNK
     Route: 048
  46. AMARYL [Concomitant]
     Active Substance: GLIMEPIRIDE
     Indication: HYPERGLYCAEMIA
     Dosage: 0.5 MG, UNK
     Route: 048
     Dates: start: 20170412, end: 20170516
  47. SIGNIFOR LAR [Suspect]
     Active Substance: PASIREOTIDE PAMOATE
     Dosage: 60 MG, UNK
     Route: 030
     Dates: start: 20170712
  48. SIGNIFOR LAR [Suspect]
     Active Substance: PASIREOTIDE PAMOATE
     Dosage: 60 MG, UNK
     Route: 030
     Dates: start: 20190213
  49. SIGNIFOR LAR [Suspect]
     Active Substance: PASIREOTIDE PAMOATE
     Dosage: 60 MG, UNK
     Route: 030
     Dates: start: 20191106
  50. MUCOSTA [Concomitant]
     Active Substance: REBAMIPIDE
     Indication: CHRONIC GASTRITIS
     Dosage: 300 MG, UNK
     Route: 048

REACTIONS (5)
  - Altered state of consciousness [Unknown]
  - Sepsis [Recovered/Resolved]
  - Blood glucose increased [Recovering/Resolving]
  - Meningitis pneumococcal [Recovered/Resolved]
  - Diabetes mellitus [Recovering/Resolving]

NARRATIVE: CASE EVENT DATE: 20170609
